FAERS Safety Report 9246206 (Version 1)
Quarter: 2013Q2

REPORT INFORMATION
  Report Type: Spontaneous
  Country: GB (occurrence: PL)
  Receive Date: 20130422
  Receipt Date: 20130422
  Transmission Date: 20140414
  Serious: Yes (Hospitalization, Other)
  Sender: FDA-Public Use
  Company Number: PL-BAUSCH-BL-2013-002123

PATIENT
  Age: 59 Year
  Sex: Male
  Weight: 81 kg

DRUGS (6)
  1. YELLOX 0.9 MG/ML EYE DROPS, SOLUTION [Suspect]
     Indication: RETINAL TELANGIECTASIA
     Route: 047
     Dates: start: 201203
  2. NEVANAC [Suspect]
     Indication: MACULAR OEDEMA
     Route: 047
     Dates: start: 201202, end: 201206
  3. LOTEMAX 0.5%, 5 MG/ML, KROPLE DO OCZU, ZAWIESINA [Suspect]
     Indication: RETINAL TELANGIECTASIA
     Route: 047
     Dates: start: 201203
  4. DIURAMID [Concomitant]
     Indication: PRODUCT USED FOR UNKNOWN INDICATION
     Route: 048
     Dates: start: 201204, end: 201205
  5. ARNICA MONTANA [Concomitant]
     Indication: RETINAL DISORDER
     Route: 048
     Dates: start: 201202
  6. MAXITROL [Concomitant]
     Indication: PRODUCT USED FOR UNKNOWN INDICATION
     Route: 047

REACTIONS (3)
  - Cardiac failure [Recovered/Resolved with Sequelae]
  - Incorrect drug administration duration [Recovered/Resolved with Sequelae]
  - Off label use [Not Recovered/Not Resolved]
